FAERS Safety Report 4556978-9 (Version None)
Quarter: 2005Q1

REPORT INFORMATION
  Report Type: 
  Country: None (occurrence: None)
  Receive Date: 20050114
  Receipt Date: 20050103
  Transmission Date: 20050727
  Serious: Yes (Other)
  Sender: FDA-Public Use
  Company Number: 2004101354

PATIENT
  Sex: Male

DRUGS (2)
  1. BENADRYL [Suspect]
     Indication: RASH
     Dosage: 2 ONCE ON 28JUN2004 AND PRN ORAL
     Route: 048
  2. CELEBREX [Suspect]
     Dosage: ORAL
     Route: 048

REACTIONS (3)
  - DRUG HYPERSENSITIVITY [None]
  - RASH [None]
  - URTICARIA [None]
